FAERS Safety Report 8316913-4 (Version None)
Quarter: 2012Q2

REPORT INFORMATION
  Report Type: 
  Country: None (occurrence: None)
  Receive Date: 20120427
  Receipt Date: 20120424
  Transmission Date: 20120825
  Serious: Yes (Death)
  Sender: FDA-Public Use
  Company Number: US-PFIZER INC-2012046663

PATIENT
  Sex: Female

DRUGS (2)
  1. REVATIO [Suspect]
     Indication: PULMONARY HYPERTENSION
     Dosage: 20 MG, 3X/DAY
     Route: 048
     Dates: start: 20110301, end: 20120201
  2. REVATIO [Suspect]
     Indication: IDIOPATHIC PULMONARY FIBROSIS

REACTIONS (2)
  - IDIOPATHIC PULMONARY FIBROSIS [None]
  - PULMONARY HYPERTENSION [None]
